FAERS Safety Report 12494833 (Version 1)
Quarter: 2016Q2

REPORT INFORMATION
  Report Type: Spontaneous
  Country: ES (occurrence: ES)
  Receive Date: 20160624
  Receipt Date: 20160624
  Transmission Date: 20160815
  Serious: Yes (Other)
  Sender: FDA-Public Use
  Company Number: ES-SUN PHARMACEUTICAL INDUSTRIES LTD-2016RR-118652

PATIENT
  Age: 60 Year
  Sex: Male
  Weight: 91 kg

DRUGS (1)
  1. LEVETIRACETAM RANBAXY 1000 MG COMPRIMIDOS RECUBIERTOS CON PELICULA EFG [Suspect]
     Active Substance: LEVETIRACETAM
     Indication: EPILEPSY
     Dosage: 1000 G, BID
     Route: 048
     Dates: start: 20150814, end: 20150827

REACTIONS (5)
  - Thought blocking [Recovered/Resolved]
  - Body temperature abnormal [Recovered/Resolved]
  - Petit mal epilepsy [Recovered/Resolved]
  - Clang associations [Recovered/Resolved]
  - Visual impairment [Recovered/Resolved]

NARRATIVE: CASE EVENT DATE: 20150818
